FAERS Safety Report 4788527-4 (Version None)
Quarter: 2005Q4

REPORT INFORMATION
  Report Type: 
  Country: None (occurrence: None)
  Receive Date: 20051005
  Receipt Date: 20051005
  Transmission Date: 20060501
  Serious: Yes (Hospitalization)
  Sender: FDA-Public Use
  Company Number: None

PATIENT
  Age: 55 Year
  Sex: Male

DRUGS (6)
  1. DOXEPIN [Suspect]
     Indication: ANTIDEPRESSANT THERAPY
     Dates: start: 20050217
  2. METOPROLOL [Concomitant]
  3. GABAPENTIN [Concomitant]
  4. PHENYTOIN [Concomitant]
  5. ATORVASTATIN [Concomitant]
  6. OLANZAPINE [Concomitant]

REACTIONS (5)
  - DEPRESSED LEVEL OF CONSCIOUSNESS [None]
  - ELECTROCARDIOGRAM QRS COMPLEX PROLONGED [None]
  - LETHARGY [None]
  - OVERDOSE [None]
  - TACHYPNOEA [None]
